FAERS Safety Report 18975749 (Version 1)
Quarter: 2021Q1

REPORT INFORMATION
  Report Type: Spontaneous
  Country: US (occurrence: US)
  Receive Date: 20210305
  Receipt Date: 20210305
  Transmission Date: 20210420
  Serious: Yes (Other)
  Sender: FDA-Public Use
  Company Number: US-BAUSCH-BL-2021-006400

PATIENT
  Age: 58 Year
  Sex: Male

DRUGS (19)
  1. GRANULOCYTE COLONY STIMULATING FACTOR [Concomitant]
     Active Substance: GRANULOCYTE COLONY-STIMULATING FACTOR NOS
     Indication: PRODUCT USED FOR UNKNOWN INDICATION
  2. DEXAMETHASONE. [Suspect]
     Active Substance: DEXAMETHASONE
     Route: 065
     Dates: start: 20190601, end: 2019
  3. CISPLATIN. [Suspect]
     Active Substance: CISPLATIN
     Indication: PLASMA CELL LEUKAEMIA
     Dosage: CYCLICAL, VD?PACE PROTOCOL
     Route: 065
     Dates: start: 201810, end: 2018
  4. CYCLOPHOSPHAMIDE. [Suspect]
     Active Substance: CYCLOPHOSPHAMIDE
     Indication: PLASMA CELL LEUKAEMIA
     Dosage: CYCLICAL, VD?PACE PROTOCOL
     Route: 065
     Dates: start: 201810, end: 2018
  5. CYCLOPHOSPHAMIDE. [Suspect]
     Active Substance: CYCLOPHOSPHAMIDE
     Dosage: CYCLICAL
     Route: 065
     Dates: start: 20181201, end: 2019
  6. DEXAMETHASONE. [Suspect]
     Active Substance: DEXAMETHASONE
     Indication: PLASMA CELL LEUKAEMIA
     Dosage: CYCLICAL, VD?PACE PROTOCOL
     Route: 065
     Dates: start: 201810, end: 2018
  7. BORTEZOMIB. [Suspect]
     Active Substance: BORTEZOMIB
     Indication: PLASMA CELL LEUKAEMIA
     Dosage: CYCLICAL, VD?PACE PROTOCOL
     Route: 065
     Dates: start: 201810, end: 2018
  8. DEXAMETHASONE. [Suspect]
     Active Substance: DEXAMETHASONE
     Indication: PLASMA CELL LEUKAEMIA
     Dosage: CYCLICAL, HYPER?CAD
     Route: 065
     Dates: start: 20181001, end: 2018
  9. VENETOCLAX. [Suspect]
     Active Substance: VENETOCLAX
     Indication: PLASMA CELL LEUKAEMIA
     Dosage: DAILY
     Route: 065
     Dates: start: 20190601
  10. CARFILZOMIB [Suspect]
     Active Substance: CARFILZOMIB
     Indication: PLASMA CELL MYELOMA
  11. DARATUMUMAB [Suspect]
     Active Substance: DARATUMUMAB
     Indication: PLASMA CELL LEUKAEMIA
     Dosage: CYCLICAL
     Route: 065
     Dates: start: 20181201, end: 2019
  12. ADRIAMYCIN [Suspect]
     Active Substance: DOXORUBICIN HYDROCHLORIDE
     Indication: PLASMA CELL LEUKAEMIA
     Dosage: CYCLICAL, VD?PACE PROTOCOL
     Route: 065
     Dates: start: 201810, end: 2018
  13. ETOPOSIDE. [Suspect]
     Active Substance: ETOPOSIDE
     Indication: PLASMA CELL LEUKAEMIA
     Dosage: CYCLICAL, VD?PACE PROTOCOL
     Route: 065
     Dates: start: 201810, end: 2018
  14. DOXORUBICIN [Suspect]
     Active Substance: DOXORUBICIN
     Indication: PLASMA CELL LEUKAEMIA
     Dosage: CYCLICAL, HYPER?CAD
     Route: 065
     Dates: start: 20181001, end: 2018
  15. REVLIMID [Suspect]
     Active Substance: LENALIDOMIDE
     Indication: PLASMA CELL LEUKAEMIA
     Dosage: CYCLICAL
     Route: 065
     Dates: start: 20181201, end: 2019
  16. PLERIXAFOR [Concomitant]
     Active Substance: PLERIXAFOR
     Indication: PRODUCT USED FOR UNKNOWN INDICATION
  17. DEXAMETHASONE. [Suspect]
     Active Substance: DEXAMETHASONE
     Dosage: CYCLICAL
     Route: 065
     Dates: start: 20181201, end: 2019
  18. CYCLOPHOSPHAMIDE. [Suspect]
     Active Substance: CYCLOPHOSPHAMIDE
     Indication: PLASMA CELL LEUKAEMIA
     Dosage: HYPER?CAD
     Route: 065
     Dates: start: 201810, end: 2018
  19. CARFILZOMIB [Suspect]
     Active Substance: CARFILZOMIB
     Indication: PLASMA CELL LEUKAEMIA
     Dosage: CYCLICAL, HYPER?CAD
     Route: 065
     Dates: start: 20181001, end: 2018

REACTIONS (4)
  - Plasma cell leukaemia [Recovering/Resolving]
  - Ejection fraction decreased [Unknown]
  - Disease progression [Recovering/Resolving]
  - Thrombocytopenia [Unknown]

NARRATIVE: CASE EVENT DATE: 2018
